FAERS Safety Report 6912320-7 (Version None)
Quarter: 2010Q3

REPORT INFORMATION
  Report Type: 
  Country: None (occurrence: None)
  Receive Date: 20100806
  Receipt Date: 20080505
  Transmission Date: 20110219
  Serious: No
  Sender: FDA-Public Use
  Company Number: US-PFIZER INC-2008024767

PATIENT
  Sex: Female
  Weight: 181.81 kg

DRUGS (1)
  1. DETROL LA [Suspect]
     Indication: INCONTINENCE
     Route: 048
     Dates: start: 20080313

REACTIONS (5)
  - FATIGUE [None]
  - GROIN PAIN [None]
  - INCONTINENCE [None]
  - IRRITABILITY [None]
  - MUSCULOSKELETAL DISCOMFORT [None]
